FAERS Safety Report 5154438-8 (Version None)
Quarter: 2006Q4

REPORT INFORMATION
  Report Type: 
  Country: None (occurrence: None)
  Receive Date: 20061114
  Receipt Date: 20061103
  Transmission Date: 20070319
  Serious: Yes (Other)
  Sender: FDA-Public Use
  Company Number: 2006136356

PATIENT
  Sex: Male

DRUGS (3)
  1. SULFASALAZINE [Suspect]
     Indication: MUSCULOSKELETAL PAIN
     Dosage: 1 GRAM (1 IN 1 D)
     Dates: start: 20050601
  2. PLAQUENIL [Suspect]
     Indication: MUSCULOSKELETAL PAIN
     Dosage: 200 MG (1 IN 1 D)
     Dates: start: 20050601
  3. METHOTREXATE [Suspect]
     Indication: MUSCULOSKELETAL PAIN
     Dosage: 10 MG (1 IN 1 WK)
     Dates: start: 20050601

REACTIONS (7)
  - ABDOMINAL PAIN UPPER [None]
  - BLOOD CREATINE PHOSPHOKINASE INCREASED [None]
  - BLOOD CREATINE PHOSPHOKINASE MB INCREASED [None]
  - CORONARY ARTERY DISEASE [None]
  - DRUG TOXICITY [None]
  - ERUCTATION [None]
  - MUSCLE DISORDER [None]
